FAERS Safety Report 18393880 (Version 4)
Quarter: 2022Q2

REPORT INFORMATION
  Report Type: Spontaneous
  Country: PT (occurrence: PT)
  Receive Date: 20201016
  Receipt Date: 20220408
  Transmission Date: 20220720
  Serious: Yes (Hospitalization, Other)
  Sender: FDA-Public Use
  Company Number: None

PATIENT

DRUGS (12)
  1. ONGENTYS [Suspect]
     Active Substance: OPICAPONE
     Indication: Parkinson^s disease
     Dosage: 50 MILLIGRAM, 1X / DAY (AT NIGHT)
     Route: 048
     Dates: start: 201902
  2. BENSERAZIDE HYDROCHLORIDE\LEVODOPA [Concomitant]
     Active Substance: BENSERAZIDE HYDROCHLORIDE\LEVODOPA
     Dosage: 1 CAPSULE 1 HOUR AFTER TAKING ONGENTYS
     Route: 048
  3. BENSERAZIDE HYDROCHLORIDE\LEVODOPA [Concomitant]
     Active Substance: BENSERAZIDE HYDROCHLORIDE\LEVODOPA
     Dosage: 1 DOSAGE FORM, 1X / DAY  (1 CAPSULE 1 HOUR AFTER TAKING ONGENTYS)
     Route: 048
  4. SINEMET [Concomitant]
     Active Substance: CARBIDOPA\LEVODOPA
     Indication: Parkinson^s disease
     Dosage: 25/100 - 4 TABLETS DAILY AT 7 A.M., 11 A.M., 3 P.M. AND 7 P.M.
     Route: 048
  5. XADAGO [Concomitant]
     Active Substance: SAFINAMIDE MESYLATE
     Indication: Parkinson^s disease
     Dosage: 100 MILLIGRAM QD
     Route: 048
  6. AMANTADINE HYDROCHLORIDE [Concomitant]
     Active Substance: AMANTADINE HYDROCHLORIDE
     Indication: Parkinson^s disease
     Dosage: (AT 7 A.M.)
     Route: 048
  7. ETORICOXIB [Concomitant]
     Active Substance: ETORICOXIB
     Indication: Muscle rigidity
     Dosage: UNK
  8. ETORICOXIB [Concomitant]
     Active Substance: ETORICOXIB
     Indication: Back pain
  9. TRAMADOL [Concomitant]
     Active Substance: TRAMADOL
     Indication: Back pain
     Dosage: AS NEEDED
     Route: 048
  10. NEXIUM I.V. [Concomitant]
     Active Substance: ESOMEPRAZOLE SODIUM
     Dosage: UNK
  11. RAMIPRIL [Concomitant]
     Active Substance: RAMIPRIL
     Dosage: UNK
  12. PROZAC [Concomitant]
     Active Substance: FLUOXETINE HYDROCHLORIDE
     Dosage: UNK

REACTIONS (5)
  - Femur fracture [Recovered/Resolved]
  - Fall [Unknown]
  - Balance disorder [Recovered/Resolved]
  - Tremor [Recovered/Resolved]
  - Inappropriate schedule of product administration [Unknown]

NARRATIVE: CASE EVENT DATE: 20200101
